FAERS Safety Report 6678180-7 (Version None)
Quarter: 2010Q2

REPORT INFORMATION
  Report Type: 
  Country: None (occurrence: None)
  Receive Date: 20100409
  Receipt Date: 20100409
  Transmission Date: 20101027
  Serious: Yes (Life-Threatening)
  Sender: FDA-Public Use
  Company Number: None

PATIENT
  Age: 50 Year
  Sex: Female
  Weight: 95.5 kg

DRUGS (2)
  1. MACROBID [Suspect]
  2. NITROFURANTOIN MACROCRYSTALLINE [Suspect]

REACTIONS (2)
  - DYSPNOEA [None]
  - RASH PRURITIC [None]
